FAERS Safety Report 12616496 (Version 1)
Quarter: 2016Q3

REPORT INFORMATION
  Report Type: Spontaneous
  Country: US (occurrence: US)
  Receive Date: 20160802
  Receipt Date: 20160802
  Transmission Date: 20161109
  Serious: No
  Sender: FDA-Public Use
  Company Number: US-009507513-1608USA001262

PATIENT
  Age: 27 Year
  Sex: Female
  Weight: 59.86 kg

DRUGS (1)
  1. NEXPLANON [Suspect]
     Active Substance: ETONOGESTREL
     Indication: CONTRACEPTION
     Dosage: 1 DF, 3 YEARS, IN LEFT ARM
     Route: 059
     Dates: start: 20160523

REACTIONS (1)
  - Implant site pruritus [Unknown]

NARRATIVE: CASE EVENT DATE: 20160711
